FAERS Safety Report 20475625 (Version 2)
Quarter: 2022Q1

REPORT INFORMATION
  Report Type: Spontaneous
  Country: PR (occurrence: PR)
  Receive Date: 20220215
  Receipt Date: 20220331
  Transmission Date: 20220423
  Serious: No
  Sender: FDA-Public Use
  Company Number: PR-PFIZER INC-202200092795

PATIENT
  Age: 14 Year
  Sex: Male
  Weight: 28.12 kg

DRUGS (2)
  1. GENOTROPIN [Suspect]
     Active Substance: SOMATROPIN
     Indication: Growth disorder
     Dosage: UNK, DAILY (1.2 EVERYDAY)
     Dates: start: 2021
  2. GENOTROPIN [Suspect]
     Active Substance: SOMATROPIN
     Indication: Growth hormone deficiency

REACTIONS (3)
  - Device use issue [Unknown]
  - Needle issue [Unknown]
  - Device issue [Unknown]

NARRATIVE: CASE EVENT DATE: 20211201
